FAERS Safety Report 11714248 (Version 1)
Quarter: 2015Q4

REPORT INFORMATION
  Report Type: Spontaneous
  Country: US (occurrence: US)
  Receive Date: 20151109
  Receipt Date: 20151109
  Transmission Date: 20160304
  Serious: No
  Sender: FDA-Public Use
  Company Number: US-MISSION PHARMACAL COMPANY-1043906

PATIENT
  Age: 74 Year
  Sex: Male

DRUGS (2)
  1. FLUCONAZOLE. [Concomitant]
     Active Substance: FLUCONAZOLE
     Route: 065
  2. THIOLA [Suspect]
     Active Substance: TIOPRONIN
     Indication: CYSTINURIA
     Dates: start: 19800101

REACTIONS (2)
  - Dysphonia [Unknown]
  - Laryngeal disorder [Unknown]

NARRATIVE: CASE EVENT DATE: 20150218
